FAERS Safety Report 8226119-5 (Version None)
Quarter: 2012Q1

REPORT INFORMATION
  Report Type: 
  Country: None (occurrence: None)
  Receive Date: 20120319
  Receipt Date: 20120308
  Transmission Date: 20120608
  Serious: Yes (Disabling)
  Sender: FDA-Public Use
  Company Number: TPG2012A00426

PATIENT
  Age: 70 Year
  Sex: Female

DRUGS (4)
  1. PLATELET AGGREGATION INHIBITORS (PLATELET AGGREGATION INHIBITORS) [Concomitant]
  2. ORAL ANTICOAGULANTS (VIT K ANTAGONISTS) [Concomitant]
  3. EDARBI [Suspect]
     Indication: ESSENTIAL HYPERTENSION
     Dosage: 40 MG (40 MG, 1 IN 1 D), PER ORAL
     Route: 048
  4. HMG COA REDUCTASE INHIBITORS (HMG COA REDUCTASE INHIBITORS) [Concomitant]

REACTIONS (2)
  - OEDEMA PERIPHERAL [None]
  - RASH PRURITIC [None]
